FAERS Safety Report 16808657 (Version 10)
Quarter: 2020Q3

REPORT INFORMATION
  Report Type: Report from Study
  Country: JP (occurrence: JP)
  Receive Date: 20190916
  Receipt Date: 20200706
  Transmission Date: 20201102
  Serious: Yes (Death, Hospitalization, Other)
  Sender: FDA-Public Use
  Company Number: JP-ROCHE-2410138

PATIENT
  Age: 73 Year
  Sex: Male
  Weight: 70 kg

DRUGS (30)
  1. SENNOSIDE [SENNOSIDE A+B] [Concomitant]
     Active Substance: SENNOSIDES A AND B
     Indication: CONSTIPATION
     Dosage: SINGLE USE AND BEGINNING OF DOSAGE DAY: INVESTIGATIONAL AGENT ADMINISTERING ?FORMER
     Route: 048
  2. OXYCODONE [Concomitant]
     Active Substance: OXYCODONE
     Indication: NON-SMALL CELL LUNG CANCER
     Dosage: 10MG PER SINGLE USE AND 1 AND BEGINNING OF DOSAGE DAYS DURING A DAY ONE?TWICE: INVESTIGATIONAL AGENT
     Route: 048
     Dates: end: 20190904
  3. MAGNESIUM OXIDE. [Concomitant]
     Active Substance: MAGNESIUM OXIDE
     Route: 048
     Dates: start: 20190917, end: 20191008
  4. HALIZON [Concomitant]
     Active Substance: AMPHOTERICIN B
     Route: 050
     Dates: start: 20190912, end: 20191008
  5. MYSER [DIFLUPREDNATE] [Concomitant]
     Indication: ECZEMA
     Dosage: PROPER QUANTITY AND BEGINNING OF DOSAGE DAY: INVESTIGATIONAL AGENT ADMINISTERING FORMER
     Route: 061
     Dates: end: 20190823
  6. ANPEC [MORPHINE HYDROCHLORIDE] [Concomitant]
     Indication: PAIN
     Route: 058
     Dates: start: 20190905, end: 20190916
  7. LYRICA [Concomitant]
     Active Substance: PREGABALIN
     Route: 048
     Dates: start: 20190917, end: 20191009
  8. SODIUM BICARBONATE;SODIUM GUALENATE HYDRATE [Concomitant]
     Indication: INFECTION PROPHYLAXIS
     Dosage: BEGINNING OF DOSAGE DAY: INVESTIGATIONAL AGENT ADMINISTERING FORMER
     Route: 050
  9. ROZEREM [Concomitant]
     Active Substance: RAMELTEON
     Indication: INSOMNIA
     Route: 048
     Dates: start: 20190918, end: 20191008
  10. LYRICA [Concomitant]
     Active Substance: PREGABALIN
     Indication: NON-SMALL CELL LUNG CANCER
     Dosage: BEGINNING OF DOSAGE DAY: INVESTIGATIONAL AGENT ADMINISTERING FORMER
     Route: 048
     Dates: end: 20190904
  11. MAGNESIUM OXIDE. [Concomitant]
     Active Substance: MAGNESIUM OXIDE
     Indication: CONSTIPATION
     Dosage: BEGINNING OF DOSAGE DAY: INVESTIGATIONAL AGENT ADMINISTERING FORMER
     Route: 048
     Dates: end: 20190904
  12. HALIZON [Concomitant]
     Active Substance: AMPHOTERICIN B
     Indication: INFECTION PROPHYLAXIS
     Dosage: BEGINNING OF DOSAGE DAY: INVESTIGATIONAL AGENT ADMINISTERING FORMER
     Route: 050
  13. RANMARK [Concomitant]
     Active Substance: DENOSUMAB
     Indication: NON-SMALL CELL LUNG CANCER
     Dosage: BEGINNING OF DOSAGE DAY: INVESTIGATIONAL AGENT ADMINISTERING FORMER
     Route: 058
     Dates: end: 20190823
  14. BAKTAR [Concomitant]
     Active Substance: SULFAMETHOXAZOLE\TRIMETHOPRIM
     Indication: INFECTION PROPHYLAXIS
     Route: 048
     Dates: start: 20190920, end: 20191008
  15. SODIUM BICARBONATE;SODIUM GUALENATE HYDRATE [Concomitant]
     Dosage: DOSE: ONE SAC ONCE
     Route: 050
     Dates: start: 20190912
  16. ATEZOLIZUMAB. [Suspect]
     Active Substance: ATEZOLIZUMAB
     Indication: NON-SMALL CELL LUNG CANCER
     Route: 041
     Dates: start: 20190823, end: 20190823
  17. ESOMEPRAZOLE. [Concomitant]
     Active Substance: ESOMEPRAZOLE MAGNESIUM
     Route: 048
     Dates: start: 20190909, end: 20191009
  18. PIARLE [Concomitant]
     Active Substance: LACTULOSE
     Route: 048
     Dates: start: 20190917, end: 20191008
  19. ESOMEPRAZOLE. [Concomitant]
     Active Substance: ESOMEPRAZOLE MAGNESIUM
     Indication: GASTRITIS PROPHYLAXIS
     Dosage: BEGINNING OF DOSAGE DAY: INVESTIGATIONAL AGENT ADMINISTERING FORMER
     Route: 048
     Dates: start: 20190909, end: 20191009
  20. BETAMETHASONE. [Concomitant]
     Active Substance: BETAMETHASONE
     Indication: NON-SMALL CELL LUNG CANCER
     Dosage: BEGINNING OF DOSAGE DAY: INVESTIGATIONAL AGENT ADMINISTERING FORMER
     Route: 048
     Dates: end: 20190904
  21. BILANOA [Concomitant]
     Active Substance: BILASTINE
     Indication: ECZEMA
     Dosage: BEGINNING OF DOSAGE DAY: INVESTIGATIONAL AGENT ADMINISTERING FORMER
     Route: 048
     Dates: end: 20190904
  22. SEROQUEL [Concomitant]
     Active Substance: QUETIAPINE FUMARATE
     Indication: INSOMNIA
     Route: 048
     Dates: start: 20190918
  23. TAPENTA [Concomitant]
     Active Substance: TAPENTADOL HYDROCHLORIDE
     Indication: NON-SMALL CELL LUNG CANCER
     Dosage: BEGINNING OF DOSAGE DAY: INVESTIGATIONAL AGENT ADMINISTERING FORMER
     Route: 048
     Dates: start: 20190904, end: 20190904
  24. BELSOMRA [Concomitant]
     Active Substance: SUVOREXANT
     Indication: INSOMNIA
     Route: 048
     Dates: start: 20190918, end: 20191008
  25. BEVACIZUMAB. [Suspect]
     Active Substance: BEVACIZUMAB
     Indication: NON-SMALL CELL LUNG CANCER
     Route: 041
     Dates: start: 20190823, end: 20190823
  26. OXYCODONE [Concomitant]
     Active Substance: OXYCODONE
     Dosage: 10MG PER SINGLE USE AND ONE?TWICE/1 A DAY
     Route: 048
     Dates: start: 20190916, end: 20191009
  27. PIARLE [Concomitant]
     Active Substance: LACTULOSE
     Indication: CONSTIPATION
     Dosage: BEGINNING OF DOSAGE DAY: INVESTIGATIONAL AGENT ADMINISTERING FORMER
     Route: 048
     Dates: end: 20190904
  28. DENOTAS [Concomitant]
     Active Substance: CALCIUM CARBONATE\CHOLECALCIFEROL\MAGNESIUM CARBONATE
     Indication: HYPOCALCAEMIA
     Dosage: BEGINNING OF DOSAGE DAY: INVESTIGATIONAL AGENT ADMINISTERING FORMER
     Route: 048
     Dates: end: 20190904
  29. FENTANYL. [Concomitant]
     Active Substance: FENTANYL
     Indication: NON-SMALL CELL LUNG CANCER
     Route: 062
     Dates: start: 20190918, end: 20191007
  30. DEQUALINIUM CHLORIDE [Concomitant]
     Active Substance: DEQUALINIUM CHLORIDE
     Indication: INFECTION PROPHYLAXIS
     Dosage: SINGLE USE AND BEGINNING OF DOSAGE DAY: INVESTIGATIONAL AGENT ADMINISTERING FORMER
     Route: 050

REACTIONS (8)
  - Ileus [Recovered/Resolved]
  - Cardiac failure [Unknown]
  - Pneumonia [Fatal]
  - Disseminated intravascular coagulation [Unknown]
  - Cerebral infarction [Unknown]
  - Encephalopathy [Not Recovered/Not Resolved]
  - Endocarditis [Not Recovered/Not Resolved]
  - Respiratory failure [Unknown]

NARRATIVE: CASE EVENT DATE: 20190905
